FAERS Safety Report 4311157-5 (Version None)
Quarter: 2004Q1

REPORT INFORMATION
  Report Type: 
  Country: None (occurrence: None)
  Receive Date: 20040302
  Receipt Date: 20040219
  Transmission Date: 20041129
  Serious: No
  Sender: FDA-Public Use
  Company Number: 2004UW03100

PATIENT
  Age: 80 Year
  Sex: Female
  Weight: 83.9154 kg

DRUGS (3)
  1. PRILOSEC [Suspect]
     Indication: DYSPEPSIA
     Dosage: 1 DF QD PO
     Route: 048
     Dates: start: 20040119, end: 20040214
  2. NAPROXEN [Concomitant]
  3. HYDROCHLOROTHIAZIDE [Concomitant]

REACTIONS (4)
  - MEDICATION ERROR [None]
  - MYALGIA [None]
  - OVERDOSE [None]
  - POLLAKIURIA [None]
